FAERS Safety Report 6867826-6 (Version None)
Quarter: 2010Q3

REPORT INFORMATION
  Report Type: 
  Country: None (occurrence: None)
  Receive Date: 20100722
  Receipt Date: 20100722
  Transmission Date: 20110219
  Serious: Yes (Life-Threatening, Other)
  Sender: FDA-Public Use
  Company Number: None

PATIENT
  Age: 55 Year
  Sex: Female
  Weight: 51.8915 kg

DRUGS (7)
  1. CHANTIX [Suspect]
     Indication: EX-TOBACCO USER
     Dosage: 2 MG. DAILY PO
     Route: 048
     Dates: start: 20100610, end: 20100715
  2. ZIAC [Concomitant]
  3. ASPIRIN [Concomitant]
  4. KLONOPIN [Concomitant]
  5. MORPHINE SULFATE [Concomitant]
  6. SOMA [Concomitant]
  7. MULTI-VITAMIN [Concomitant]

REACTIONS (7)
  - DEPRESSION [None]
  - HALLUCINATION [None]
  - HOMICIDAL IDEATION [None]
  - NAUSEA [None]
  - PARANOIA [None]
  - SOMNOLENCE [None]
  - WEIGHT DECREASED [None]
